FAERS Safety Report 7525829-2 (Version None)
Quarter: 2011Q2

REPORT INFORMATION
  Report Type: 
  Country: None (occurrence: None)
  Receive Date: 20110606
  Receipt Date: 20110519
  Transmission Date: 20111010
  Serious: Yes (Hospitalization)
  Sender: FDA-Public Use
  Company Number: A0789781A

PATIENT
  Age: 53 Year
  Sex: Male
  Weight: 120.5 kg

DRUGS (6)
  1. JANUVIA [Concomitant]
  2. GEMFIBROZIL [Concomitant]
  3. LISINOPRIL [Concomitant]
  4. GLIPIZIDE [Concomitant]
  5. AVANDIA [Suspect]
     Indication: DIABETES MELLITUS
     Dosage: 4MG PER DAY
     Route: 048
     Dates: start: 20060101, end: 20080101
  6. METFORMIN HCL [Concomitant]

REACTIONS (2)
  - MYOCARDIAL INFARCTION [None]
  - MYOCARDIAL ISCHAEMIA [None]
